FAERS Safety Report 13117637 (Version 3)
Quarter: 2019Q2

REPORT INFORMATION
  Report Type: Spontaneous
  Country: DE (occurrence: DE)
  Receive Date: 20170116
  Receipt Date: 20190410
  Transmission Date: 20190711
  Serious: Yes (Disabling)
  Sender: FDA-Public Use
  Company Number: DE-SA-2017SA004358

PATIENT
  Age: 49 Year
  Sex: Male

DRUGS (6)
  1. LEMTRADA [Suspect]
     Active Substance: ALEMTUZUMAB
     Dosage: UNK
     Dates: start: 201604, end: 201604
  2. LEMTRADA [Suspect]
     Active Substance: ALEMTUZUMAB
     Indication: RELAPSING-REMITTING MULTIPLE SCLEROSIS
     Dosage: 12 MG,QD
     Route: 041
     Dates: start: 20150209, end: 20150211
  3. LEMTRADA [Suspect]
     Active Substance: ALEMTUZUMAB
     Dosage: UNK
     Dates: start: 20180808, end: 20180810
  4. INTERFERON BETA-1A [Concomitant]
     Active Substance: INTERFERON BETA-1A
  5. INTERFERON BETA-1B [Concomitant]
     Active Substance: INTERFERON BETA-1B
  6. MITOXANTRONE [Concomitant]
     Active Substance: MITOXANTRONE HYDROCHLORIDE
     Dosage: CUMULATIVE DOSE 71 MG/M2

REACTIONS (1)
  - Alopecia universalis [Recovered/Resolved]

NARRATIVE: CASE EVENT DATE: 201605
